FAERS Safety Report 8073334-X (Version None)
Quarter: 2012Q1

REPORT INFORMATION
  Report Type: 
  Country: None (occurrence: None)
  Receive Date: 20120126
  Receipt Date: 20120111
  Transmission Date: 20120608
  Serious: No
  Sender: FDA-Public Use
  Company Number: FR-ACTELION-A-CH2012-60243

PATIENT

DRUGS (1)
  1. TRACLEER [Suspect]
     Route: 064

REACTIONS (1)
  - NORMAL NEWBORN [None]
